FAERS Safety Report 19503213 (Version 1)
Quarter: 2021Q3

REPORT INFORMATION
  Report Type: Spontaneous
  Country: US (occurrence: US)
  Receive Date: 20210708
  Receipt Date: 20210708
  Transmission Date: 20211014
  Serious: Yes (Other)
  Sender: FDA-Public Use
  Company Number: US-QUAGEN-2021QUASPO00051

PATIENT
  Age: 12 Year
  Sex: Male
  Weight: 32.6 kg

DRUGS (2)
  1. FOCALIN [Concomitant]
     Active Substance: DEXMETHYLPHENIDATE HYDROCHLORIDE
     Indication: ATTENTION DEFICIT HYPERACTIVITY DISORDER
     Route: 065
  2. CYPROHEPTADINE HYDROCHLORIDE ORAL SOLUTION USP, 2 MG/5 ML [Suspect]
     Active Substance: CYPROHEPTADINE HYDROCHLORIDE
     Indication: APPETITE DISORDER
     Dosage: 2 MG/5 ML
     Route: 048
     Dates: start: 20210630

REACTIONS (5)
  - Seizure [Not Recovered/Not Resolved]
  - Pyrexia [Not Recovered/Not Resolved]
  - Crying [Not Recovered/Not Resolved]
  - Vomiting [Not Recovered/Not Resolved]
  - Product use in unapproved indication [Unknown]

NARRATIVE: CASE EVENT DATE: 20210630
